FAERS Safety Report 6044754-X (Version None)
Quarter: 2009Q1

REPORT INFORMATION
  Report Type: 
  Country: None (occurrence: None)
  Receive Date: 20090120
  Receipt Date: 20090109
  Transmission Date: 20090719
  Serious: Yes (Life-Threatening)
  Sender: FDA-Public Use
  Company Number: ES-B.I. PHARMACEUTICALS,INC./RIDGEFIELD-2009-BP-00630YA

PATIENT
  Sex: Male
  Weight: 60 kg

DRUGS (7)
  1. OMNIC OCAS ORODISPERSABLE [Suspect]
     Indication: PROSTATISM
     Route: 048
     Dates: start: 20070605, end: 20081214
  2. BISOPROLOL [Concomitant]
  3. ACETYLSALICYLIC ACID SRT [Concomitant]
  4. SIMVASTATIN [Concomitant]
  5. NITROPLAST [Concomitant]
     Dates: end: 20081214
  6. TRIMETAZIDINE [Concomitant]
  7. OMEPRAZOLE [Concomitant]

REACTIONS (1)
  - CARDIAC ARREST [None]
